FAERS Safety Report 5856776-X (Version None)
Quarter: 2008Q3

REPORT INFORMATION
  Report Type: 
  Country: None (occurrence: None)
  Receive Date: 20080825
  Receipt Date: 20080821
  Transmission Date: 20090109
  Serious: Yes (Death, Hospitalization)
  Sender: FDA-Public Use
  Company Number: SE-ASTRAZENECA-2008SE03990

PATIENT
  Age: 87 Year
  Sex: Male

DRUGS (7)
  1. ZESTRIL [Suspect]
     Indication: CARDIAC FAILURE
     Route: 048
     Dates: start: 20080401
  2. ZESTRIL [Suspect]
     Indication: OEDEMA DUE TO CARDIAC DISEASE
     Route: 048
     Dates: start: 20080401
  3. DUROFERON [Concomitant]
  4. FURIX [Concomitant]
  5. GLIBENKLAMID [Concomitant]
  6. PROCREN DEPOT [Concomitant]
  7. NOVOLOG MIX 70/30 [Concomitant]

REACTIONS (2)
  - ANGIOEDEMA [None]
  - OEDEMA MOUTH [None]
